FAERS Safety Report 16208829 (Version 1)
Quarter: 2019Q2

REPORT INFORMATION
  Report Type: Spontaneous
  Country: DE (occurrence: DE)
  Receive Date: 20190417
  Receipt Date: 20190417
  Transmission Date: 20190711
  Serious: Yes (Hospitalization)
  Sender: FDA-Public Use
  Company Number: DE-MYLANLABS-2019M1036306

PATIENT
  Age: 57 Year
  Sex: Female

DRUGS (10)
  1. VALDOXAN [Interacting]
     Active Substance: AGOMELATINE
     Dosage: 25 MG IN EVENING.VALDOXAN IS TO BE DISCONTINUED
     Route: 048
     Dates: start: 201810
  2. ZYPREXA [Concomitant]
     Active Substance: OLANZAPINE
     Indication: PRODUCT USED FOR UNKNOWN INDICATION
     Dosage: UNK
     Route: 048
     Dates: start: 201807
  3. ZOPICLONE [Interacting]
     Active Substance: ZOPICLONE
     Indication: INSOMNIA
     Dosage: TRIED IN LOW DOSAGES
     Route: 048
     Dates: start: 201806
  4. VALDOXAN [Interacting]
     Active Substance: AGOMELATINE
     Dosage: 25 MILLIGRAM, QD
     Route: 048
     Dates: start: 20180710
  5. TRIMIPRAMIN-NEURAXPHARM [Interacting]
     Active Substance: TRIMIPRAMINE MALEATE
     Indication: PRODUCT USED FOR UNKNOWN INDICATION
     Dosage: CURRENTLY10 DROPS/DAY TO BE INCRESED TO 20DROP
     Route: 048
  6. VALDOXAN [Interacting]
     Active Substance: AGOMELATINE
     Indication: DEPRESSION
     Dosage: 25 MILLIGRAM, Q2D
     Route: 048
     Dates: start: 201807
  7. TAVOR (LORAZEPAM) [Concomitant]
     Active Substance: LORAZEPAM
     Indication: PRODUCT USED FOR UNKNOWN INDICATION
     Route: 065
     Dates: start: 20180601
  8. MIRTAZAPINE. [Suspect]
     Active Substance: MIRTAZAPINE
     Indication: PRODUCT USED FOR UNKNOWN INDICATION
     Dosage: UNK
     Route: 048
  9. DIPIPERON [Concomitant]
     Active Substance: PIPAMPERONE
     Indication: PRODUCT USED FOR UNKNOWN INDICATION
     Dosage: UNKNOWN - DIFFERENT DOSING
     Route: 065
     Dates: start: 201807
  10. ZOPICLONE [Interacting]
     Active Substance: ZOPICLONE
     Dosage: 7.5 MILLIGRAM, QD
     Route: 048
     Dates: start: 201807

REACTIONS (7)
  - Drug interaction [Unknown]
  - Condition aggravated [Not Recovered/Not Resolved]
  - Depression [Not Recovered/Not Resolved]
  - Fatigue [Not Recovered/Not Resolved]
  - Sleep disorder [Not Recovered/Not Resolved]
  - Nightmare [Unknown]
  - Sedation [Unknown]

NARRATIVE: CASE EVENT DATE: 2018
